FAERS Safety Report 23738814 (Version 1)
Quarter: 2024Q2

REPORT INFORMATION
  Report Type: Spontaneous
  Country: CA (occurrence: None)
  Receive Date: 20240413
  Receipt Date: 20240413
  Transmission Date: 20240716
  Serious: Yes (Other)
  Sender: FDA-Public Use
  Company Number: 2024A085707

PATIENT
  Age: 62 Year
  Sex: Male

DRUGS (10)
  1. CANDESARTAN [Suspect]
     Active Substance: CANDESARTAN
  2. ROSUVASTATIN [Suspect]
     Active Substance: ROSUVASTATIN
     Route: 058
  3. AMLODIPINE [Suspect]
     Active Substance: AMLODIPINE BESYLATE
  4. FLUTICASONE PROPIONATE\SALMETEROL XINAFOATE [Suspect]
     Active Substance: FLUTICASONE PROPIONATE\SALMETEROL XINAFOATE
  5. HYDROMORPHONE [Suspect]
     Active Substance: HYDROMORPHONE
  6. OLANZAPINE [Suspect]
     Active Substance: OLANZAPINE
  7. PANTOPRAZOLE [Suspect]
     Active Substance: PANTOPRAZOLE
  8. PREDNISONE [Suspect]
     Active Substance: PREDNISONE
  9. ALBUTEROL SULFATE [Suspect]
     Active Substance: ALBUTEROL SULFATE
  10. SENNOSIDES [Suspect]
     Active Substance: SENNOSIDES

REACTIONS (1)
  - Febrile neutropenia [Unknown]
